FAERS Safety Report 6888913-2 (Version None)
Quarter: 2010Q3

REPORT INFORMATION
  Report Type: 
  Country: None (occurrence: None)
  Receive Date: 20100730
  Receipt Date: 20071121
  Transmission Date: 20110219
  Serious: Yes (Other)
  Sender: FDA-Public Use
  Company Number: US-PFIZER INC-2007098718

PATIENT
  Sex: Female
  Weight: 55 kg

DRUGS (4)
  1. LIPITOR [Suspect]
     Indication: BLOOD CHOLESTEROL INCREASED
     Dates: start: 20071001
  2. CARDIZEM [Suspect]
     Indication: HYPERTENSION
  3. DIOVAN HCT [Concomitant]
  4. ACTONEL [Concomitant]

REACTIONS (1)
  - HYPERTENSION [None]
